FAERS Safety Report 16239750 (Version 1)
Quarter: 2019Q2

REPORT INFORMATION
  Report Type: Spontaneous
  Country: US (occurrence: US)
  Receive Date: 20190425
  Receipt Date: 20190425
  Transmission Date: 20190711
  Serious: No
  Sender: FDA-Public Use
  Company Number: US-GLAXOSMITHKLINE-US2019AMR070813

PATIENT
  Age: 37 Year
  Sex: Female

DRUGS (1)
  1. EPOPROSTENOL SODIUM POWDER FOR INFUSION [Suspect]
     Active Substance: EPOPROSTENOL SODIUM
     Indication: PULMONARY ARTERIAL HYPERTENSION
     Dosage: 88 NKM, UNK
     Route: 042
     Dates: end: 20190321

REACTIONS (4)
  - Cold sweat [Unknown]
  - Dizziness [Unknown]
  - Feeling cold [Unknown]
  - Drug withdrawal syndrome [Unknown]

NARRATIVE: CASE EVENT DATE: 20190413
